FAERS Safety Report 10929236 (Version 1)
Quarter: 2015Q1

REPORT INFORMATION
  Report Type: Spontaneous
  Country: US (occurrence: None)
  Receive Date: 20150318
  Receipt Date: 20150318
  Transmission Date: 20150721
  Serious: Yes (Disabling)
  Sender: FDA-Public Use
  Company Number: None

PATIENT
  Age: 53 Year
  Sex: Female
  Weight: 104.33 kg

DRUGS (9)
  1. ROPINIROLE. [Concomitant]
     Active Substance: ROPINIROLE
  2. LEVOCETIRIZINE [Concomitant]
     Active Substance: LEVOCETIRIZINE
  3. HYDROXYZINE [Concomitant]
     Active Substance: HYDROXYZINE\HYDROXYZINE HYDROCHLORIDE
  4. METFORMIN [Concomitant]
     Active Substance: METFORMIN HYDROCHLORIDE
  5. ROPINIROLE. [Suspect]
     Active Substance: ROPINIROLE
     Indication: RESTLESS LEGS SYNDROME
     Dosage: TAKEN BY MOUTH
     Route: 048
  6. OMEPRAZOLE. [Concomitant]
     Active Substance: OMEPRAZOLE
  7. GLIPIZIDE. [Concomitant]
     Active Substance: GLIPIZIDE
  8. KVZ [Concomitant]
  9. MILTON, ZADINA [Concomitant]

REACTIONS (11)
  - Malaise [None]
  - Extra dose administered [None]
  - Nausea [None]
  - Dyspnoea [None]
  - Chills [None]
  - Drug dose omission [None]
  - Product quality issue [None]
  - Impaired work ability [None]
  - Stress [None]
  - Product substitution issue [None]
  - Vomiting projectile [None]

NARRATIVE: CASE EVENT DATE: 20150316
